FAERS Safety Report 25810141 (Version 1)
Quarter: 2025Q3

REPORT INFORMATION
  Report Type: Report from Study
  Country: US (occurrence: US)
  Receive Date: 20250917
  Receipt Date: 20250917
  Transmission Date: 20251021
  Serious: No
  Sender: DECIPHERA PHARMACEUTICALS
  Company Number: US-DECIPHERA PHARMACEUTICALS LLC-2025US001060

PATIENT
  Age: 61 Year
  Sex: Female

DRUGS (1)
  1. QINLOCK [Suspect]
     Active Substance: RIPRETINIB
     Indication: Gastrointestinal stromal tumour
     Dosage: 150 MILLIGRAM, BID (3 TABLETS OF QINLOCK TWICE DAILY)
     Route: 048
     Dates: start: 20250326

REACTIONS (1)
  - Urine odour abnormal [Unknown]

NARRATIVE: CASE EVENT DATE: 20250822
